FAERS Safety Report 7449974-5 (Version None)
Quarter: 2011Q2

REPORT INFORMATION
  Report Type: 
  Country: None (occurrence: None)
  Receive Date: 20110421
  Receipt Date: 20110411
  Transmission Date: 20111010
  Serious: No
  Sender: FDA-Public Use
  Company Number: 2011-00174

PATIENT
  Age: 33 Year
  Sex: Male
  Weight: 86.1834 kg

DRUGS (3)
  1. EPIDUR [Concomitant]
  2. OXYMETAZOLINE HCL [Suspect]
     Dosage: BID, 2 DAYS
     Dates: start: 20110409, end: 20110410
  3. AMOXICILLIN [Concomitant]

REACTIONS (2)
  - AGEUSIA [None]
  - ANOSMIA [None]
